FAERS Safety Report 5646553-7 (Version None)
Quarter: 2008Q1

REPORT INFORMATION
  Report Type: 
  Country: None (occurrence: None)
  Receive Date: 20080228
  Receipt Date: 20080228
  Transmission Date: 20080703
  Serious: Yes (Hospitalization)
  Sender: FDA-Public Use
  Company Number: None

PATIENT
  Sex: Female
  Weight: 63.5036 kg

DRUGS (1)
  1. DILANTIN [Suspect]
     Indication: NEUROSURGERY
     Dosage: PO  (THERAPY DATES: PRIOR TO ER VISIT)
     Route: 048

REACTIONS (4)
  - BURNING SENSATION [None]
  - PRURITUS [None]
  - RASH GENERALISED [None]
  - RASH MACULO-PAPULAR [None]
